FAERS Safety Report 6589529-8 (Version None)
Quarter: 2010Q1

REPORT INFORMATION
  Report Type: 
  Country: None (occurrence: None)
  Receive Date: 20100218
  Receipt Date: 20100209
  Transmission Date: 20100710
  Serious: Yes (Hospitalization, Other)
  Sender: FDA-Public Use
  Company Number: DE-GENENTECH-298060

PATIENT
  Sex: Female

DRUGS (13)
  1. RITUXIMAB [Suspect]
     Indication: DIFFUSE LARGE B-CELL LYMPHOMA
     Dosage: 375 MG/M2, UNK
     Route: 042
     Dates: start: 20080401
  2. RITUXIMAB [Suspect]
     Dosage: UNK
     Route: 042
     Dates: start: 20080601, end: 20080701
  3. RITUXIMAB [Suspect]
     Dosage: 375 MG/M2, Q3M
     Route: 042
     Dates: start: 20090325
  4. CYCLOPHOSPHAMIDE [Suspect]
     Indication: DIFFUSE LARGE B-CELL LYMPHOMA
     Dosage: UNK
     Route: 065
     Dates: start: 20080401
  5. CYCLOPHOSPHAMIDE [Suspect]
     Dosage: UNK
     Route: 065
     Dates: start: 20080601, end: 20080701
  6. DOXORUBICIN HCL [Suspect]
     Indication: DIFFUSE LARGE B-CELL LYMPHOMA
     Dosage: UNK
     Route: 065
     Dates: start: 20080401
  7. DOXORUBICIN HCL [Suspect]
     Dosage: UNK
     Route: 065
     Dates: start: 20080601, end: 20080701
  8. VINCRISTINE [Suspect]
     Indication: DIFFUSE LARGE B-CELL LYMPHOMA
     Dosage: UNK
     Route: 065
     Dates: start: 20080401
  9. VINCRISTINE [Suspect]
     Dosage: UNK
     Route: 065
     Dates: start: 20080601, end: 20080701
  10. PREDNISOLONE [Suspect]
     Indication: DIFFUSE LARGE B-CELL LYMPHOMA
     Dosage: UNK
     Route: 065
     Dates: start: 20080401
  11. PREDNISOLONE [Suspect]
     Dosage: UNK
     Route: 065
     Dates: start: 20080601, end: 20080701
  12. DECORTIN [Concomitant]
     Indication: DRUG USE FOR UNKNOWN INDICATION
     Dosage: UNK
     Route: 048
     Dates: start: 20080417
  13. CITALON [Concomitant]
     Indication: DRUG USE FOR UNKNOWN INDICATION
     Dosage: UNK

REACTIONS (3)
  - FEBRILE NEUTROPENIA [None]
  - GINGIVITIS [None]
  - SUBCLAVIAN VEIN THROMBOSIS [None]
